FAERS Safety Report 7786772-7 (Version None)
Quarter: 2011Q3

REPORT INFORMATION
  Report Type: 
  Country: None (occurrence: None)
  Receive Date: 20110929
  Receipt Date: 20110920
  Transmission Date: 20111222
  Serious: Yes (Disabling)
  Sender: FDA-Public Use
  Company Number: JP-ASTRAZENECA-2011SE56568

PATIENT
  Age: 50 Year
  Sex: Male

DRUGS (2)
  1. AMBISOME [Suspect]
     Route: 041
     Dates: start: 20110901, end: 20110915
  2. OMEPRAZOLE [Suspect]
     Indication: GASTRIC ULCER
     Dosage: 20
     Route: 048
     Dates: start: 20110828, end: 20110915

REACTIONS (1)
  - RHABDOMYOLYSIS [None]
